FAERS Safety Report 5286776-2 (Version None)
Quarter: 2007Q1

REPORT INFORMATION
  Report Type: 
  Country: None (occurrence: None)
  Receive Date: 20070116
  Receipt Date: 20061114
  Transmission Date: 20070707
  Serious: No
  Sender: FDA-Public Use
  Company Number: 2006SP004051

PATIENT
  Age: 57 Year
  Sex: Female
  Weight: 58.9676 kg

DRUGS (5)
  1. LUNESTA [Suspect]
     Indication: INSOMNIA
     Dosage: 2 MG HS ORAL
     Route: 048
     Dates: start: 20061111
  2. LEXAPRO [Concomitant]
  3. IBANDRONATE SODIUM [Concomitant]
  4. CHOLESTYRAMINE [Concomitant]
  5. ROZEREM [Concomitant]

REACTIONS (1)
  - DYSGEUSIA [None]
